FAERS Safety Report 6810805-5 (Version None)
Quarter: 2010Q2

REPORT INFORMATION
  Report Type: 
  Country: None (occurrence: None)
  Receive Date: 20100630
  Receipt Date: 20080520
  Transmission Date: 20101027
  Serious: No
  Sender: FDA-Public Use
  Company Number: US-PFIZER INC-2008027006

PATIENT
  Sex: Female

DRUGS (1)
  1. ESTRING [Suspect]
     Dates: start: 20080305

REACTIONS (6)
  - HEADACHE [None]
  - MALAISE [None]
  - NAUSEA [None]
  - PRODUCT QUALITY ISSUE [None]
  - VERTIGO [None]
  - VOMITING [None]
